FAERS Safety Report 9957476 (Version 1)
Quarter: 2014Q1

REPORT INFORMATION
  Report Type: Report from Study
  Country: US (occurrence: US)
  Receive Date: 20140304
  Receipt Date: 20140304
  Transmission Date: 20141002
  Serious: No
  Sender: FDA-Public Use
  Company Number: US-ABBVIE-13P-163-1092854-00

PATIENT
  Age: 60 Year
  Sex: Female

DRUGS (12)
  1. HUMIRA [Suspect]
     Indication: RHEUMATOID ARTHRITIS
     Dates: start: 20130222, end: 20130503
  2. METHOTREXATE [Concomitant]
     Indication: PRODUCT USED FOR UNKNOWN INDICATION
     Dosage: WEEKLY
     Route: 050
  3. PREDNISONE [Concomitant]
     Indication: PRODUCT USED FOR UNKNOWN INDICATION
     Dosage: 5MG DAILY
  4. FOLIC ACID [Concomitant]
     Indication: PRODUCT USED FOR UNKNOWN INDICATION
     Dosage: 1MG DAILY
  5. AMLODIPINE BENAZEPRIL [Concomitant]
     Indication: HYPERTENSION
     Dosage: 10-20MG DAILY
  6. PROZAC [Concomitant]
     Indication: DEPRESSION
     Dosage: 40MG DAILY
  7. HYDROCHLOROTHIAZIDE [Concomitant]
     Indication: DIURETIC THERAPY
     Dosage: 25MG DAILY
  8. DIAZEPAM [Concomitant]
     Indication: PRODUCT USED FOR UNKNOWN INDICATION
     Dosage: 10MG DAILY
  9. LORTAB [Concomitant]
     Indication: PAIN
     Dosage: 7.5-500MG
  10. VIT C [Concomitant]
     Indication: PRODUCT USED FOR UNKNOWN INDICATION
     Dosage: DAILY
  11. IRON [Concomitant]
     Indication: ANAEMIA
     Dosage: DAILY
  12. BABY ASPIRIN [Concomitant]
     Indication: CARDIOVASCULAR EVENT PROPHYLAXIS

REACTIONS (1)
  - Rash papular [Not Recovered/Not Resolved]
